FAERS Safety Report 6682397-5 (Version None)
Quarter: 2010Q2

REPORT INFORMATION
  Report Type: 
  Country: None (occurrence: None)
  Receive Date: 20100415
  Receipt Date: 20100401
  Transmission Date: 20101027
  Serious: Yes (Other)
  Sender: FDA-Public Use
  Company Number: US-RANBAXY-2010RR-32637

PATIENT
  Age: 44 Year
  Sex: Female

DRUGS (21)
  1. QUETIAPINE [Suspect]
  2. DULOXETINE HYDROCHLORIDE [Suspect]
  3. FENTANYL [Suspect]
     Dosage: UNK UG, UNK
  4. ONDANSETRON-BP [Suspect]
  5. LITHIUM [Suspect]
  6. CLONAZEPAM [Suspect]
  7. LAMOTRIGINE [Suspect]
  8. TOPIRAMATE [Suspect]
  9. MIDAZOLAM HCL [Suspect]
     Dosage: 5 MG, UNK
     Route: 042
  10. FENTANYL [Suspect]
     Indication: ANAESTHESIA
     Dosage: 100 UG, UNK
     Route: 042
  11. FENTANYL [Suspect]
     Dosage: 250 UG, UNK
     Route: 042
  12. PROPOFOL [Suspect]
     Indication: ANAESTHESIA
     Dosage: 120 MG, UNK
  13. ROCURONIUM BROMIDE [Suspect]
     Indication: ANAESTHESIA
     Dosage: 20 MG, UNK
     Route: 042
  14. DESFLURANE [Suspect]
     Indication: ANAESTHESIA
  15. FENTANYL [Suspect]
     Dosage: 250 UG, UNK
     Route: 042
  16. HYDROMORPHONE HCL [Suspect]
     Dosage: 2 MG, UNK
     Route: 042
  17. ONDANSETRON SOLUTION FOR INJECTION [Suspect]
     Indication: NAUSEA
     Dosage: 4 MG, UNK
     Route: 042
  18. ONDANSETRON SOLUTION FOR INJECTION [Suspect]
     Indication: VOMITING
  19. NEOSTIGMINE [Suspect]
     Dosage: 5 MG, UNK
     Route: 042
  20. GLYCOPYRROLATE [Suspect]
     Dosage: 0.7 MG, UNK
  21. ROCURONIUM BROMIDE [Suspect]
     Dosage: 50 MG, UNK

REACTIONS (5)
  - APHASIA [None]
  - DISTURBANCE IN ATTENTION [None]
  - DRUG INTERACTION [None]
  - SEROTONIN SYNDROME [None]
  - UNRESPONSIVE TO STIMULI [None]
